FAERS Safety Report 5364045-X (Version None)
Quarter: 2007Q2

REPORT INFORMATION
  Report Type: 
  Country: None (occurrence: None)
  Receive Date: 20070530
  Receipt Date: 20070109
  Transmission Date: 20071010
  Serious: No
  Sender: FDA-Public Use
  Company Number: 2007PV028077

PATIENT
  Age: 50 Year
  Sex: Female
  Weight: 81.1939 kg

DRUGS (10)
  1. BYETTA [Suspect]
     Indication: DIABETES MELLITUS NON-INSULIN-DEPENDENT
     Dosage: SEE IMAGE
     Route: 058
     Dates: start: 20061211, end: 20070310
  2. BYETTA [Suspect]
     Indication: DIABETES MELLITUS NON-INSULIN-DEPENDENT
     Dosage: SEE IMAGE
     Route: 058
     Dates: start: 20070311
  3. METPORMIN [Concomitant]
  4. ACTOS [Concomitant]
  5. GLIPIZIDE [Concomitant]
  6. CORTISONE ACETATE [Concomitant]
  7. LIPITOR [Concomitant]
  8. POTASSIUM CHLORIDE [Concomitant]
  9. FLUID PILL [Concomitant]
  10. BLOOD PRESSURE PILL [Concomitant]

REACTIONS (5)
  - BLOOD GLUCOSE INCREASED [None]
  - DECREASED APPETITE [None]
  - INJECTION SITE IRRITATION [None]
  - INJECTION SITE NODULE [None]
  - WEIGHT DECREASED [None]
